FAERS Safety Report 8775498 (Version 1)
Quarter: 2012Q4

REPORT INFORMATION
  Report Type: 
  Country: US (occurrence: US)
  Receive Date: 20120910
  Receipt Date: 20120910
  Transmission Date: 20130627
  Serious: Yes (Other)
  Sender: FDA-Public Use
  Company Number: US-GENZYME-LEUK-1000301

PATIENT
  Sex: Male

DRUGS (4)
  1. LEUKINE [Suspect]
     Indication: PROSTATE CANCER
     Dosage: 250-500 mcg daily (15 days out of a month), left abdominal quadrant
     Route: 065
  2. LEUKINE [Suspect]
     Dosage: 250-500 mcg, daily (15days out of a month), right abdominal quadrant
  3. INSULIN [Concomitant]
     Indication: PRODUCT USED FOR UNKNOWN INDICATION
     Dosage: UNK (into upper abdominal quadrants)
     Route: 065
  4. LOW MOLECULAR WEIGHT HEPARIN [Concomitant]
     Indication: PRODUCT USED FOR UNKNOWN INDICATION
     Dosage: UNK (into lower right abdominal quadrants)
     Route: 065

REACTIONS (2)
  - Bradycardia [Unknown]
  - Dyspnoea [Recovered/Resolved]
